FAERS Safety Report 5016777-0 (Version None)
Quarter: 2006Q2

REPORT INFORMATION
  Report Type: 
  Country: None (occurrence: None)
  Receive Date: 20060602
  Receipt Date: 20060523
  Transmission Date: 20061013
  Serious: Yes (Death)
  Sender: FDA-Public Use
  Company Number: FR-SANOFI-SYNTHELABO-A01200603930

PATIENT
  Age: 66 Year
  Sex: Female

DRUGS (2)
  1. PLAVIX [Suspect]
     Indication: CORONARY ARTERIAL STENT INSERTION
     Dosage: 300 MG LOADING DOSE
     Route: 048
     Dates: start: 20060501
  2. PLAVIX [Suspect]
     Indication: ANGIOPLASTY
     Dosage: 300 MG LOADING DOSE
     Route: 048
     Dates: start: 20060501

REACTIONS (1)
  - THROMBOSIS IN DEVICE [None]
